FAERS Safety Report 5457497-8 (Version None)
Quarter: 2007Q3

REPORT INFORMATION
  Report Type: 
  Country: None (occurrence: None)
  Receive Date: 20070918
  Receipt Date: 20070307
  Transmission Date: 20080115
  Serious: No
  Sender: FDA-Public Use
  Company Number: US-ASTRAZENECA-2007UW04197

PATIENT
  Age: 64 Year
  Sex: Male
  Weight: 81.6 kg

DRUGS (4)
  1. SEROQUEL [Suspect]
     Indication: BIPOLAR DISORDER
     Route: 048
  2. DEPAKOTE [Concomitant]
  3. KLONOPIN [Concomitant]
  4. ATENOLOL [Concomitant]

REACTIONS (3)
  - CONSTIPATION [None]
  - HANGOVER [None]
  - MALAISE [None]
